FAERS Safety Report 10640155 (Version 1)
Quarter: 2014Q4

REPORT INFORMATION
  Report Type: Spontaneous
  Country: US (occurrence: None)
  Receive Date: 20141208
  Receipt Date: 20141208
  Transmission Date: 20150529
  Serious: No
  Sender: FDA-Public Use
  Company Number: None

PATIENT
  Age: 47 Year
  Sex: Female
  Weight: 77.11 kg

DRUGS (1)
  1. BUPROPION HCL XL [Suspect]
     Active Substance: BUPROPION HYDROCHLORIDE
     Indication: ANXIETY
     Dosage: 1 PILL?
     Route: 048
     Dates: start: 20141205, end: 20141205

REACTIONS (3)
  - Pain in jaw [None]
  - Musculoskeletal chest pain [None]
  - Arthralgia [None]

NARRATIVE: CASE EVENT DATE: 20141205
